FAERS Safety Report 7403487-5 (Version None)
Quarter: 2011Q2

REPORT INFORMATION
  Report Type: 
  Country: None (occurrence: None)
  Receive Date: 20110408
  Receipt Date: 20110328
  Transmission Date: 20111010
  Serious: Yes (Hospitalization)
  Sender: FDA-Public Use
  Company Number: IT-BAYER-2011-026984

PATIENT
  Sex: Female

DRUGS (6)
  1. DELTACORTENE [Suspect]
     Indication: POLYMYALGIA RHEUMATICA
     Dosage: DAILY DOSE 5 MG
     Route: 048
     Dates: start: 20100101
  2. FUROSEMIDE [Concomitant]
     Dosage: DAILY DOSE 50 MG
  3. LANOXIN [Concomitant]
     Indication: ATRIAL FIBRILLATION
     Dosage: DAILY DOSE .062 MG
     Route: 048
  4. DURAGESIC-100 [Concomitant]
     Dosage: DAILY DOSE 25 MCG/24HR
     Route: 062
  5. ASPIRIN [Suspect]
     Indication: PROPHYLAXIS
     Dosage: 100 MG, QD
     Route: 048
     Dates: start: 20100101, end: 20110226
  6. PARIET [Concomitant]
     Dosage: DAILY DOSE 20 MG
     Route: 048

REACTIONS (1)
  - ANAEMIA [None]
